FAERS Safety Report 14216239 (Version 2)
Quarter: 2017Q4

REPORT INFORMATION
  Report Type: Spontaneous
  Country: US (occurrence: US)
  Receive Date: 20171122
  Receipt Date: 20171218
  Transmission Date: 20180321
  Serious: Yes (Other)
  Sender: FDA-Public Use
  Company Number: US-JNJFOC-20171118588

PATIENT
  Age: 71 Year
  Sex: Male
  Weight: 89.36 kg

DRUGS (11)
  1. ALLEGRA [Concomitant]
     Active Substance: FEXOFENADINE HYDROCHLORIDE
     Indication: PRURITUS
  2. VITAMIN D [Concomitant]
     Active Substance: CHOLECALCIFEROL
  3. CITALOPRAM [Concomitant]
     Active Substance: CITALOPRAM HYDROBROMIDE
  4. DARZALEX [Suspect]
     Active Substance: DARATUMUMAB
     Indication: PLASMA CELL MYELOMA
     Route: 042
  5. ALLOPURINOL. [Concomitant]
     Active Substance: ALLOPURINOL
  6. PENTAMIDINE [Concomitant]
     Active Substance: PENTAMIDINE
  7. ALLOPURINOL. [Concomitant]
     Active Substance: ALLOPURINOL
  8. LORAZEPAM. [Concomitant]
     Active Substance: LORAZEPAM
     Indication: INSOMNIA
  9. LORAZEPAM. [Concomitant]
     Active Substance: LORAZEPAM
     Indication: ANXIETY
  10. FLUOCINONIDE. [Concomitant]
     Active Substance: FLUOCINONIDE
  11. VENETOCLAX. [Concomitant]
     Active Substance: VENETOCLAX

REACTIONS (2)
  - Drug dose omission [Unknown]
  - Blood creatinine increased [Not Recovered/Not Resolved]

NARRATIVE: CASE EVENT DATE: 20171115
